FAERS Safety Report 15566866 (Version 4)
Quarter: 2019Q1

REPORT INFORMATION
  Report Type: Spontaneous
  Country: US (occurrence: US)
  Receive Date: 20181030
  Receipt Date: 20190214
  Transmission Date: 20190417
  Serious: No
  Sender: FDA-Public Use
  Company Number: US-PFIZER INC-2018424186

PATIENT
  Age: 30 Year
  Sex: Female

DRUGS (2)
  1. GENOTROPIN [Suspect]
     Active Substance: SOMATROPIN
     Dosage: 0.8 MG, DAILY
     Dates: start: 20060303
  2. GENOTROPIN [Suspect]
     Active Substance: SOMATROPIN
     Indication: TRISOMY 21
     Dosage: 0.2 MG, DAILY
     Dates: start: 20060303

REACTIONS (9)
  - Wrong technique in device usage process [Unknown]
  - Blood glucose increased [Unknown]
  - Albumin globulin ratio increased [Unknown]
  - Blood albumin decreased [Unknown]
  - Product use in unapproved indication [Unknown]
  - Product dose omission [Unknown]
  - Blood thyroid stimulating hormone decreased [Unknown]
  - Blood sodium decreased [Unknown]
  - Globulins increased [Unknown]

NARRATIVE: CASE EVENT DATE: 20180912
